FAERS Safety Report 17057130 (Version 1)
Quarter: 2019Q4

REPORT INFORMATION
  Report Type: Spontaneous
  Country: CA (occurrence: CA)
  Receive Date: 20191121
  Receipt Date: 20191121
  Transmission Date: 20200122
  Serious: Yes (Life-Threatening)
  Sender: FDA-Public Use
  Company Number: CA-ACCORD-161080

PATIENT
  Age: 25 Year
  Sex: Male
  Weight: 88 kg

DRUGS (2)
  1. RAMIPRIL. [Suspect]
     Active Substance: RAMIPRIL
     Indication: PRODUCT USED FOR UNKNOWN INDICATION
  2. VENOFER [Interacting]
     Active Substance: IRON SUCROSE
     Indication: NEPHROGENIC ANAEMIA
     Dosage: ONCE, SOLUTION INTRAVENOUS
     Route: 041

REACTIONS (6)
  - Musculoskeletal stiffness [Recovered/Resolved]
  - Potentiating drug interaction [Unknown]
  - Hypotension [Recovered/Resolved]
  - Peripheral swelling [Recovered/Resolved]
  - Joint swelling [Recovered/Resolved]
  - Joint stiffness [Recovered/Resolved]
